FAERS Safety Report 11930208 (Version 1)
Quarter: 2016Q1

REPORT INFORMATION
  Report Type: Spontaneous
  Country: US (occurrence: None)
  Receive Date: 20160120
  Receipt Date: 20160120
  Transmission Date: 20160526
  Serious: Yes (Life-Threatening, Hospitalization)
  Sender: FDA-Public Use
  Company Number: None

PATIENT
  Age: 58 Year
  Sex: Male
  Weight: 79.8 kg

DRUGS (1)
  1. SULFAMETHOXAZOLE/TRIMETHOPRIM [Suspect]
     Active Substance: SULFAMETHOXAZOLE\TRIMETHOPRIM
     Indication: URINARY TRACT INFECTION
     Dosage: 800/160 MG  BID PO
     Dates: start: 20150831, end: 20150910

REACTIONS (4)
  - Transaminases increased [None]
  - Hypotension [None]
  - Drug reaction with eosinophilia and systemic symptoms [None]
  - Pyrexia [None]

NARRATIVE: CASE EVENT DATE: 20150924
